FAERS Safety Report 16489084 (Version 1)
Quarter: 2019Q2

REPORT INFORMATION
  Report Type: Other
  Country: GB (occurrence: GB)
  Receive Date: 20190628
  Receipt Date: 20190628
  Transmission Date: 20190711
  Serious: Yes (Other)
  Sender: FDA-Public Use
  Company Number: GB-EMCURE PHARMACEUTICALS LTD-2019-EPL-0306

PATIENT
  Age: 32 Year
  Sex: Female

DRUGS (1)
  1. TRANEXAMIC ACID. [Suspect]
     Active Substance: TRANEXAMIC ACID
     Dosage: 3 GRAM,DAILY
     Route: 048

REACTIONS (3)
  - Back pain [Unknown]
  - Chest discomfort [Unknown]
  - Vomiting [Unknown]
